FAERS Safety Report 7825990-6 (Version None)
Quarter: 2011Q4

REPORT INFORMATION
  Report Type: 
  Country: None (occurrence: None)
  Receive Date: 20111019
  Receipt Date: 20111011
  Transmission Date: 20120403
  Serious: Yes (Hospitalization)
  Sender: FDA-Public Use
  Company Number: JP-GILEAD-2011-0045572

PATIENT

DRUGS (1)
  1. AMBRISENTAN [Suspect]
     Indication: PULMONARY HYPERTENSION
     Dosage: 2.5 MG, UNK
     Route: 048
     Dates: start: 20110930, end: 20111002

REACTIONS (5)
  - URINE OUTPUT DECREASED [None]
  - OEDEMA [None]
  - OXYGEN SATURATION DECREASED [None]
  - DECREASED ACTIVITY [None]
  - CONDITION AGGRAVATED [None]
